FAERS Safety Report 9417603 (Version 2)
Quarter: 2013Q3

REPORT INFORMATION
  Report Type: Spontaneous
  Country: US (occurrence: None)
  Receive Date: 20130723
  Receipt Date: 20130731
  Transmission Date: 20140515
  Serious: No
  Sender: FDA-Public Use
  Company Number: 2013CT000059

PATIENT
  Age: 58 Year
  Sex: Female
  Weight: 88 kg

DRUGS (4)
  1. KORLYM [Suspect]
     Indication: PITUITARY-DEPENDENT CUSHING^S SYNDROME
     Route: 048
     Dates: start: 20100104, end: 20130716
  2. LT-4 [Concomitant]
  3. IMITREX [Concomitant]
  4. ZOLOFT [Concomitant]

REACTIONS (2)
  - Endometrial disorder [None]
  - Uterine haemorrhage [None]
